FAERS Safety Report 5941986-3 (Version None)
Quarter: 2008Q4

REPORT INFORMATION
  Report Type: 
  Country: None (occurrence: None)
  Receive Date: 20081105
  Receipt Date: 20081027
  Transmission Date: 20090506
  Serious: Yes (Hospitalization)
  Sender: FDA-Public Use
  Company Number: US-MERCK-0810USA01823

PATIENT
  Age: 60 Year
  Sex: Male
  Weight: 77 kg

DRUGS (10)
  1. JANUVIA [Suspect]
     Indication: TYPE 2 DIABETES MELLITUS
     Route: 048
     Dates: start: 20080520, end: 20080612
  2. COREG [Concomitant]
     Indication: CARDIOMYOPATHY
     Route: 048
  3. ACTOS [Concomitant]
     Indication: TYPE 2 DIABETES MELLITUS
     Route: 048
  4. GLIPIZIDE [Concomitant]
     Indication: TYPE 2 DIABETES MELLITUS
     Route: 048
  5. HYDROCHLOROTHIAZIDE AND LISINOPRIL [Concomitant]
     Indication: HYPERTENSION
     Route: 048
  6. LIPITOR [Concomitant]
     Indication: BLOOD CHOLESTEROL INCREASED
     Route: 048
  7. IMDUR [Concomitant]
     Route: 048
  8. ASPIRIN [Concomitant]
     Route: 048
  9. LISINOPRIL [Concomitant]
     Route: 048
  10. GLYBURIDE [Concomitant]
     Route: 065

REACTIONS (14)
  - BACK PAIN [None]
  - CELLULITIS [None]
  - CHILLS [None]
  - DERMATITIS ALLERGIC [None]
  - DRUG ERUPTION [None]
  - FLANK PAIN [None]
  - HYPERGLYCAEMIA [None]
  - LYME DISEASE [None]
  - NECK PAIN [None]
  - OROPHARYNGEAL PAIN [None]
  - PYREXIA [None]
  - RENAL FAILURE [None]
  - ROCKY MOUNTAIN SPOTTED FEVER [None]
  - STEVENS-JOHNSON SYNDROME [None]
